FAERS Safety Report 8221637-8 (Version None)
Quarter: 2012Q1

REPORT INFORMATION
  Report Type: 
  Country: None (occurrence: None)
  Receive Date: 20120320
  Receipt Date: 20120315
  Transmission Date: 20120608
  Serious: Yes (Other)
  Sender: FDA-Public Use
  Company Number: BR-PFIZER INC-2012062407

PATIENT
  Age: 46 Year
  Sex: Female

DRUGS (4)
  1. ALPRAZOLAM [Suspect]
     Indication: INSOMNIA
  2. ALPRAZOLAM [Suspect]
     Indication: HEADACHE
  3. ALPRAZOLAM [Suspect]
     Indication: ANXIETY
     Dosage: 2 MG, 1X/DAY
     Route: 048
     Dates: start: 20030317
  4. ALPRAZOLAM [Suspect]
     Indication: ANXIETY
     Dosage: UNK
     Route: 048

REACTIONS (9)
  - FEELING ABNORMAL [None]
  - UTERINE OPERATION [None]
  - GALLBLADDER OPERATION [None]
  - MALAISE [None]
  - FIBROMYALGIA [None]
  - HEPATIC PAIN [None]
  - SLEEP DISORDER [None]
  - TREMOR [None]
  - VISION BLURRED [None]
